FAERS Safety Report 8333756-6 (Version None)
Quarter: 2012Q2

REPORT INFORMATION
  Report Type: 
  Country: None (occurrence: None)
  Receive Date: 20120503
  Receipt Date: 20120420
  Transmission Date: 20120825
  Serious: Yes (Death, Other)
  Sender: FDA-Public Use
  Company Number: AT-CELGENEUS-009-21880-12041848

PATIENT
  Age: 69 Year
  Sex: Female
  Weight: 49 kg

DRUGS (2)
  1. REVLIMID [Suspect]
     Route: 048
     Dates: start: 20100301
  2. STEROIDS [Concomitant]
     Route: 065
     Dates: start: 20100301

REACTIONS (3)
  - SUDDEN DEATH [None]
  - SIGMOIDITIS [None]
  - HEPATIC CYST [None]
